FAERS Safety Report 8209715-0 (Version None)
Quarter: 2012Q1

REPORT INFORMATION
  Report Type: 
  Country: None (occurrence: None)
  Receive Date: 20120228
  Receipt Date: 20110119
  Transmission Date: 20120608
  Serious: Yes (Hospitalization, Other)
  Sender: FDA-Public Use
  Company Number: RB-16897-2010

PATIENT
  Sex: Male

DRUGS (1)
  1. SUBUTEX [Suspect]
     Indication: DRUG DEPENDENCE
     Dosage: (8 MG BID TRANSPLACENTAL)
     Route: 064
     Dates: start: 20100701, end: 20101006

REACTIONS (1)
  - DRUG WITHDRAWAL SYNDROME NEONATAL [None]
